FAERS Safety Report 6736089-4 (Version None)
Quarter: 2010Q2

REPORT INFORMATION
  Report Type: 
  Country: None (occurrence: None)
  Receive Date: 20100521
  Receipt Date: 20100513
  Transmission Date: 20101027
  Serious: Yes (Hospitalization)
  Sender: FDA-Public Use
  Company Number: CA-ABBOTT-10P-028-0644883-00

PATIENT
  Sex: Male

DRUGS (2)
  1. HUMIRA [Suspect]
     Indication: CROHN'S DISEASE
     Route: 058
     Dates: start: 20100420, end: 20100420
  2. HUMIRA [Suspect]
     Route: 058
     Dates: start: 20100504, end: 20100504

REACTIONS (2)
  - ABDOMINAL PAIN [None]
  - SWELLING FACE [None]
